FAERS Safety Report 4916645-6 (Version None)
Quarter: 2006Q1

REPORT INFORMATION
  Report Type: 
  Country: None (occurrence: None)
  Receive Date: 20060216
  Receipt Date: 20060216
  Transmission Date: 20060701
  Serious: Yes (Hospitalization)
  Sender: FDA-Public Use
  Company Number: None

PATIENT
  Age: 58 Year
  Sex: Female
  Weight: 65.7716 kg

DRUGS (6)
  1. OXYCONTIN [Suspect]
     Indication: BACK PAIN
     Dosage: 40 MG TWICE DAILY ORALLY
     Route: 048
  2. CORTISONE ACETATE TAB [Concomitant]
  3. NEURONTIN [Concomitant]
  4. INDERAL [Concomitant]
  5. EXPRATEST [Concomitant]
  6. PROZAC [Concomitant]

REACTIONS (6)
  - DEPRESSED LEVEL OF CONSCIOUSNESS [None]
  - DRUG LEVEL DECREASED [None]
  - HYPOTONIA [None]
  - LETHARGY [None]
  - PAIN [None]
  - RESTLESSNESS [None]
